FAERS Safety Report 11944046 (Version 1)
Quarter: 2016Q1

REPORT INFORMATION
  Report Type: Spontaneous
  Country: US (occurrence: US)
  Receive Date: 20160125
  Receipt Date: 20160125
  Transmission Date: 20160526
  Serious: No
  Sender: FDA-Public Use
  Company Number: US-UNITED THERAPEUTICS-UNT-2015-013532

PATIENT
  Age: 51 Year
  Sex: Female
  Weight: 103.4 kg

DRUGS (1)
  1. REMODULIN [Suspect]
     Active Substance: TREPROSTINIL
     Indication: PULMONARY HYPERTENSION
     Dosage: 0.023 ?G/KG/MIN, CONTINUING
     Route: 041
     Dates: start: 20150701

REACTIONS (5)
  - Vomiting [Recovered/Resolved]
  - Flushing [Recovered/Resolved]
  - Accidental overdose [Recovered/Resolved]
  - Wrong technique in product usage process [Recovered/Resolved]
  - Dizziness [Recovered/Resolved]

NARRATIVE: CASE EVENT DATE: 201510
